FAERS Safety Report 25883540 (Version 1)
Quarter: 2025Q4

REPORT INFORMATION
  Report Type: Report from Study
  Country: US (occurrence: US)
  Receive Date: 20251006
  Receipt Date: 20251006
  Transmission Date: 20260117
  Serious: Yes (Hospitalization)
  Sender: ROCHE
  Company Number: US-ROCHE-10000403891

PATIENT
  Age: 13 Year
  Sex: Female

DRUGS (7)
  1. RITUXIMAB [Suspect]
     Active Substance: RITUXIMAB
     Indication: Nephritis
     Dosage: WITH A MAXIMUM OF 1 G PER DOSE,  WITH TWO DOSES ADMINISTERED TWO WEEKS APART EVERY SIX MONTHS
     Route: 042
  2. CYCLOPHOSPHAMIDE [Suspect]
     Active Substance: CYCLOPHOSPHAMIDE
     Indication: Nephritis
     Dosage: 500 TO 750 MG/M2
     Route: 042
  3. PREDNISONE [Concomitant]
     Active Substance: PREDNISONE
  4. DIPHENHYDRAMINE [Concomitant]
     Active Substance: DIPHENHYDRAMINE
     Indication: Premedication
  5. ACETAMINOPHEN [Concomitant]
     Active Substance: ACETAMINOPHEN
     Indication: Premedication
  6. METHYLPREDNISOLONE [Concomitant]
     Active Substance: METHYLPREDNISOLONE
     Indication: Premedication
     Dosage: WITH A MAXIMUM OF 1 G PER DOSE
     Route: 042
  7. MESNA [Concomitant]
     Active Substance: MESNA
     Indication: Premedication

REACTIONS (1)
  - Pelvic inflammatory disease [Unknown]
